FAERS Safety Report 5104597-8 (Version None)
Quarter: 2006Q3

REPORT INFORMATION
  Report Type: 
  Country: None (occurrence: None)
  Receive Date: 20060914
  Receipt Date: 20060315
  Transmission Date: 20061208
  Serious: No
  Sender: FDA-Public Use
  Company Number: US-BRISTOL-MYERS SQUIBB COMPANY-13315221

PATIENT
  Sex: Female
  Weight: 133 kg

DRUGS (8)
  1. BUSPAR [Suspect]
  2. ZOLOFT [Concomitant]
  3. SINGULAIR [Concomitant]
  4. ALDACTAZIDE [Concomitant]
  5. TOPROL-XL [Concomitant]
  6. ALLEGRA [Concomitant]
  7. CRESTOR [Concomitant]
  8. ADVAIR DISKUS 100/50 [Concomitant]

REACTIONS (2)
  - DRY MOUTH [None]
  - TONGUE DISCOLOURATION [None]
